FAERS Safety Report 24793344 (Version 1)
Quarter: 2024Q4

REPORT INFORMATION
  Report Type: Spontaneous
  Country: US (occurrence: US)
  Receive Date: 20241231
  Receipt Date: 20241231
  Transmission Date: 20250114
  Serious: Yes (Other)
  Sender: TEVA
  Company Number: US-TEVA-VS-3280201

PATIENT
  Age: 52 Year
  Sex: Male

DRUGS (2)
  1. LENALIDOMIDE [Suspect]
     Active Substance: LENALIDOMIDE
     Indication: Myelofibrosis
     Dosage: FOR 21 DAYS OF 28 DAYS CYCLE
     Route: 065
  2. PREDNISONE [Suspect]
     Active Substance: PREDNISONE
     Indication: Myelofibrosis
     Route: 065

REACTIONS (2)
  - Diarrhoea [Unknown]
  - Neuropathy peripheral [Unknown]
